FAERS Safety Report 9627118 (Version 1)
Quarter: 2013Q4

REPORT INFORMATION
  Report Type: Spontaneous
  Country: HU (occurrence: HU)
  Receive Date: 20131016
  Receipt Date: 20131016
  Transmission Date: 20140711
  Serious: Yes (Other)
  Sender: FDA-Public Use
  Company Number: HU-PFIZER INC-2013294304

PATIENT
  Sex: 0

DRUGS (1)
  1. CARDURA XL [Suspect]

REACTIONS (3)
  - Coeliac disease [Unknown]
  - Cross sensitivity reaction [Unknown]
  - Rash [Not Recovered/Not Resolved]
